FAERS Safety Report 5344178-4 (Version None)
Quarter: 2007Q2

REPORT INFORMATION
  Report Type: 
  Country: None (occurrence: None)
  Receive Date: 20070604
  Receipt Date: 20070523
  Transmission Date: 20071010
  Serious: Yes (Hospitalization)
  Sender: FDA-Public Use
  Company Number: GB-ROCHE-497303

PATIENT
  Age: 9 Year
  Sex: Female

DRUGS (3)
  1. CEFTRIAXONE SODIUM [Suspect]
     Route: 042
  2. IBUPROFEN [Suspect]
     Indication: PYREXIA
     Route: 048
  3. PARACETAMOL [Suspect]
     Indication: PYREXIA
     Route: 048

REACTIONS (13)
  - ABDOMINAL PAIN [None]
  - ANURIA [None]
  - BLOOD CREATININE INCREASED [None]
  - BLOOD UREA INCREASED [None]
  - CYSTOSCOPY ABNORMAL [None]
  - HYDRONEPHROSIS [None]
  - HYDROURETER [None]
  - POLYURIA [None]
  - RENAL FAILURE ACUTE [None]
  - RENAL PAPILLARY NECROSIS [None]
  - ULTRASOUND SCAN ABNORMAL [None]
  - URETERIC OBSTRUCTION [None]
  - URINE OUTPUT DECREASED [None]
